FAERS Safety Report 25769147 (Version 1)
Quarter: 2025Q3

REPORT INFORMATION
  Report Type: Spontaneous
  Country: US (occurrence: US)
  Receive Date: 20250905
  Receipt Date: 20250905
  Transmission Date: 20251020
  Serious: No
  Sender: AMGEN
  Company Number: US-AMGEN-USASP2025176948

PATIENT
  Sex: Female

DRUGS (5)
  1. OTEZLA [Suspect]
     Active Substance: APREMILAST
     Indication: Psoriasis
     Dosage: 30 MILLIGRAM, BID
     Route: 048
     Dates: start: 20240605
  2. CLOBETASOL [Concomitant]
     Active Substance: CLOBETASOL
  3. INTRON A [Concomitant]
     Active Substance: INTERFERON ALFA-2B
  4. OMEPRAZOLE [Concomitant]
     Active Substance: OMEPRAZOLE
  5. ZOLOFT [Concomitant]
     Active Substance: SERTRALINE HYDROCHLORIDE

REACTIONS (1)
  - Psoriasis [Unknown]
